FAERS Safety Report 23848500 (Version 1)
Quarter: 2024Q2

REPORT INFORMATION
  Report Type: Spontaneous
  Country: US (occurrence: None)
  Receive Date: 20240511
  Receipt Date: 20240511
  Transmission Date: 20240716
  Serious: Yes (Hospitalization)
  Sender: FDA-Public Use
  Company Number: None

PATIENT
  Age: 75 Year
  Sex: Male

DRUGS (2)
  1. AXITINIB [Suspect]
     Active Substance: AXITINIB
     Indication: Pain
     Dosage: FREQUENCY : TWICE A DAY;?
     Route: 048
     Dates: start: 20210223, end: 20210322
  2. IBUPROFEN [Suspect]
     Active Substance: IBUPROFEN
     Dates: start: 20210305

REACTIONS (4)
  - Angioedema [None]
  - Lip swelling [None]
  - Swollen tongue [None]
  - Dysarthria [None]

NARRATIVE: CASE EVENT DATE: 20210306
